FAERS Safety Report 14021922 (Version 1)
Quarter: 2017Q3

REPORT INFORMATION
  Report Type: Spontaneous
  Country: DE (occurrence: DE)
  Receive Date: 20170928
  Receipt Date: 20170928
  Transmission Date: 20171128
  Serious: Yes (Hospitalization, Other)
  Sender: FDA-Public Use
  Company Number: DE-BAYER-2017-182388

PATIENT
  Age: 23 Year
  Sex: Female

DRUGS (1)
  1. MIRENA [Suspect]
     Active Substance: LEVONORGESTREL
     Indication: CONTRACEPTIVE IMPLANT
     Dosage: 20 MCG/24HR, CONT
     Route: 015
     Dates: start: 20120622, end: 2015

REACTIONS (39)
  - Abdominal pain lower [Recovered/Resolved with Sequelae]
  - Ocular icterus [Recovering/Resolving]
  - Insomnia [Recovering/Resolving]
  - Suicidal ideation [Recovered/Resolved]
  - Rash [None]
  - Vulvovaginal candidiasis [Recovered/Resolved]
  - Panic attack [Recovered/Resolved with Sequelae]
  - Initial insomnia [Recovering/Resolving]
  - Dyspepsia [Recovered/Resolved with Sequelae]
  - Vaginal infection [Recovered/Resolved]
  - Hypoaesthesia [Recovered/Resolved with Sequelae]
  - Impaired driving ability [Recovered/Resolved]
  - Diarrhoea [Recovered/Resolved with Sequelae]
  - Application site pain [Recovered/Resolved with Sequelae]
  - Malaise [Recovering/Resolving]
  - Libido decreased [Recovering/Resolving]
  - Disturbance in attention [Recovered/Resolved with Sequelae]
  - Intentional self-injury [Recovered/Resolved with Sequelae]
  - Abdominal distension [Recovered/Resolved with Sequelae]
  - Impaired work ability [Recovered/Resolved with Sequelae]
  - Personality change [Recovered/Resolved with Sequelae]
  - Mood swings [Recovered/Resolved with Sequelae]
  - Paranoia [Recovered/Resolved]
  - Post procedural discharge [Recovered/Resolved]
  - Constipation [Recovered/Resolved with Sequelae]
  - Nervousness [Recovered/Resolved with Sequelae]
  - Hypersomnia [Recovering/Resolving]
  - Anhedonia [Recovered/Resolved with Sequelae]
  - Nightmare [Recovering/Resolving]
  - Implant site infection [Recovered/Resolved]
  - Fatigue [None]
  - Middle insomnia [Recovering/Resolving]
  - Tachyphrenia [Recovering/Resolving]
  - Depressed mood [Recovered/Resolved with Sequelae]
  - Feeling of despair [Recovered/Resolved with Sequelae]
  - Irritability [Recovered/Resolved]
  - Snoring [Recovered/Resolved]
  - Asthenia [Recovered/Resolved with Sequelae]
  - Gastroenteritis [Recovered/Resolved with Sequelae]

NARRATIVE: CASE EVENT DATE: 2012
